FAERS Safety Report 16714261 (Version 1)
Quarter: 2019Q3

REPORT INFORMATION
  Report Type: Spontaneous
  Country: IT (occurrence: IT)
  Receive Date: 20190819
  Receipt Date: 20190819
  Transmission Date: 20191004
  Serious: Yes (Other)
  Sender: FDA-Public Use
  Company Number: IT-TEVA-2019-IT-1093909

PATIENT
  Age: 25 Year
  Sex: Male
  Weight: 100 kg

DRUGS (1)
  1. ESOMEPRAZOLO TEVA ITALIA 40 MG CAPSULE RIGIDE GASTRORESISTENTI [Suspect]
     Active Substance: ESOMEPRAZOLE
     Indication: GASTROOESOPHAGEAL REFLUX DISEASE
     Dosage: 1 MG PER DAY
     Route: 048
     Dates: start: 20180601, end: 20190601

REACTIONS (6)
  - Migraine [Recovering/Resolving]
  - Insomnia [Recovering/Resolving]
  - Mood swings [Recovering/Resolving]
  - Nausea [Recovering/Resolving]
  - Decreased appetite [Recovering/Resolving]
  - Vertigo [Recovering/Resolving]

NARRATIVE: CASE EVENT DATE: 20190601
